FAERS Safety Report 9373572 (Version 2)
Quarter: 2013Q3

REPORT INFORMATION
  Report Type: Spontaneous
  Country: DK (occurrence: FR)
  Receive Date: 20130627
  Receipt Date: 20130718
  Transmission Date: 20140515
  Serious: Yes (Hospitalization)
  Sender: FDA-Public Use
  Company Number: FR-FRI-1000046248

PATIENT
  Age: 91 Year
  Sex: Female

DRUGS (9)
  1. MEMANTINE [Suspect]
     Indication: DEMENTIA ALZHEIMER^S TYPE
     Dosage: 40 MG
     Route: 048
  2. CITALOPRAM [Suspect]
     Indication: DEPRESSION
     Dosage: 20 MG
     Route: 048
  3. KARDEGIC [Suspect]
     Dosage: 1 DF
     Route: 048
  4. SIMVASTATINE [Suspect]
     Indication: HYPERCHOLESTEROLAEMIA
     Dosage: 1 DF
     Route: 048
  5. AMOXICILLINE TEVA [Suspect]
     Indication: BRONCHITIS
     Dosage: 3 GRAM
     Route: 048
     Dates: start: 20130521, end: 20130601
  6. RULID [Suspect]
     Indication: BRONCHITIS
     Dosage: 2 DF
     Route: 048
     Dates: start: 20130524, end: 20130601
  7. PERINDOPRIL [Suspect]
     Indication: HYPERTENSION
     Dosage: 1 DF
     Route: 048
  8. ACEBUTOLOL [Suspect]
     Indication: HYPERTENSION
     Dosage: 200 MG
     Route: 048
  9. LASILIX FAIBLE [Suspect]
     Dosage: 1 DF
     Route: 048

REACTIONS (4)
  - Rash maculo-papular [Recovered/Resolved]
  - Toxic skin eruption [Recovered/Resolved]
  - Pruritus [Recovered/Resolved]
  - Overdose [Recovered/Resolved]
